FAERS Safety Report 7464658-5 (Version None)
Quarter: 2011Q2

REPORT INFORMATION
  Report Type: 
  Country: None (occurrence: None)
  Receive Date: 20110509
  Receipt Date: 20110324
  Transmission Date: 20111010
  Serious: Yes (Hospitalization, Other)
  Sender: FDA-Public Use
  Company Number: US-BAYER-201037421NA

PATIENT
  Age: 32 Year
  Sex: Female
  Weight: 68.617 kg

DRUGS (3)
  1. YASMIN [Suspect]
     Indication: CONTRACEPTION
     Dates: start: 20060913
  2. YASMIN [Suspect]
     Dosage: UNK
     Dates: start: 20030501
  3. YAZ [Suspect]
     Dates: start: 20060913

REACTIONS (3)
  - GALLBLADDER INJURY [None]
  - CHOLECYSTITIS CHRONIC [None]
  - CHOLELITHIASIS [None]
